FAERS Safety Report 4933650-4 (Version None)
Quarter: 2006Q1

REPORT INFORMATION
  Report Type: 
  Country: None (occurrence: None)
  Receive Date: 20060306
  Receipt Date: 20060106
  Transmission Date: 20060701
  Serious: Yes (Other)
  Sender: FDA-Public Use
  Company Number: DK-ROCHE-430861

PATIENT
  Age: 34 Year
  Sex: Female

DRUGS (1)
  1. LARIAM [Suspect]
     Indication: MALARIA PROPHYLAXIS
     Dosage: ORDINARY GROWN-UP PROPHYLACTIC LARIAM DOSIS.
     Route: 048
     Dates: start: 20040915, end: 20050915

REACTIONS (10)
  - ABORTION [None]
  - ALANINE AMINOTRANSFERASE ABNORMAL [None]
  - BLOOD THYROID STIMULATING HORMONE INCREASED [None]
  - HYPOAESTHESIA [None]
  - LEUKOPENIA [None]
  - LYMPHOCYTE COUNT ABNORMAL [None]
  - MONOCYTE COUNT ABNORMAL [None]
  - NEUTROPHIL COUNT ABNORMAL [None]
  - SENSORY DISTURBANCE [None]
  - WHITE BLOOD CELL COUNT DECREASED [None]
